FAERS Safety Report 23550319 (Version 4)
Quarter: 2024Q3

REPORT INFORMATION
  Report Type: Spontaneous
  Country: US (occurrence: US)
  Receive Date: 20240221
  Receipt Date: 20240807
  Transmission Date: 20241017
  Serious: Yes (Other)
  Sender: BRISTOL MYERS SQUIBB
  Company Number: US-BRISTOL-MYERS SQUIBB COMPANY-2024-024862

PATIENT
  Age: 85 Year
  Sex: Female

DRUGS (2)
  1. LENALIDOMIDE [Suspect]
     Active Substance: LENALIDOMIDE
     Indication: Plasma cell myeloma
     Dosage: TAKE 1 CAPSULE BY MOUTH EVERY DAY
     Route: 048
     Dates: start: 201812
  2. LENALIDOMIDE [Suspect]
     Active Substance: LENALIDOMIDE
     Dosage: TAKE 1 CAPSULE BY MOUTH DAILY
     Route: 048

REACTIONS (6)
  - Arthralgia [Recovering/Resolving]
  - Flank pain [Recovering/Resolving]
  - Functional gastrointestinal disorder [Unknown]
  - Product supply issue [Unknown]
  - Femur fracture [Unknown]
  - Intentional dose omission [Unknown]

NARRATIVE: CASE EVENT DATE: 20240313
